FAERS Safety Report 6537782-9 (Version None)
Quarter: 2010Q1

REPORT INFORMATION
  Report Type: 
  Country: None (occurrence: None)
  Receive Date: 20100114
  Receipt Date: 20100104
  Transmission Date: 20100710
  Serious: Yes (Other)
  Sender: FDA-Public Use
  Company Number: GB-PFIZER INC-2009297826

PATIENT
  Age: 63 Year
  Sex: Male
  Weight: 102 kg

DRUGS (4)
  1. ZYVOX [Suspect]
     Dosage: 600 MG, 2X/DAY
     Route: 042
     Dates: start: 20091015, end: 20091017
  2. BENZYLPENICILLIN [Concomitant]
     Dosage: 1.2 G, UNIT DOSE
     Route: 042
     Dates: start: 20091017
  3. TAZOCIN [Concomitant]
     Dosage: 4.5 G, UNIT DOSE
     Route: 042
     Dates: start: 20091017
  4. CLINDAMYCIN [Concomitant]
     Dosage: 900 MG UNIT DOSE
     Route: 042
     Dates: start: 20091017

REACTIONS (4)
  - ACUTE RESPIRATORY DISTRESS SYNDROME [None]
  - BONE MARROW FAILURE [None]
  - CELLULITIS [None]
  - MALAISE [None]
